FAERS Safety Report 17982825 (Version 12)
Quarter: 2022Q2

REPORT INFORMATION
  Report Type: Other
  Country: ES (occurrence: ES)
  Receive Date: 20200706
  Receipt Date: 20220426
  Transmission Date: 20220721
  Serious: Yes (Other)
  Sender: FDA-Public Use
  Company Number: None

PATIENT
  Age: 65 Year
  Sex: Female

DRUGS (6)
  1. BOCEPREVIR [Suspect]
     Active Substance: BOCEPREVIR
     Indication: Hepatitis C
     Dosage: 2400 MILLIGRAM, QD
     Route: 065
     Dates: start: 20120302, end: 20120307
  2. BOCEPREVIR [Suspect]
     Active Substance: BOCEPREVIR
     Dosage: 2400 MILLIGRAM, QD
     Route: 065
     Dates: start: 20120302, end: 20120307
  3. PEGINTERFERON ALFA-2A [Suspect]
     Active Substance: PEGINTERFERON ALFA-2A
     Indication: Hepatitis C
     Dosage: 1 PRE-FILLED SYRINGE OF 0.5 ML
     Route: 058
     Dates: start: 20120201, end: 20120307
  4. RIBAVIRIN [Suspect]
     Active Substance: RIBAVIRIN
     Indication: Hepatitis C
     Dosage: 1200 MG, QD
     Route: 048
     Dates: start: 20120201, end: 20120307
  5. VICTRELIS [Suspect]
     Active Substance: BOCEPREVIR
     Indication: Hepatitis C
     Route: 065
     Dates: start: 20120302, end: 20120307
  6. FUROSEMIDE [Concomitant]
     Active Substance: FUROSEMIDE
     Indication: Diuretic therapy
     Dosage: 40 MILLIGRAM, QD
     Route: 048
     Dates: start: 20120307, end: 20120411

REACTIONS (4)
  - Anaemia [Recovered/Resolved]
  - Oedema [Unknown]
  - Hyponatraemia [Unknown]
  - Fluid retention [Recovered/Resolved]

NARRATIVE: CASE EVENT DATE: 20120301
